FAERS Safety Report 7431076-5 (Version None)
Quarter: 2011Q2

REPORT INFORMATION
  Report Type: 
  Country: None (occurrence: None)
  Receive Date: 20110421
  Receipt Date: 20110411
  Transmission Date: 20111010
  Serious: Yes (Other)
  Sender: FDA-Public Use
  Company Number: US-ELI_LILLY_AND_COMPANY-US201104003789

PATIENT
  Sex: Female

DRUGS (2)
  1. FORTEO [Suspect]
  2. BENADRYL [Concomitant]

REACTIONS (1)
  - CONVULSION [None]
